FAERS Safety Report 26048211 (Version 1)
Quarter: 2025Q4

REPORT INFORMATION
  Report Type: Spontaneous
  Country: US (occurrence: None)
  Receive Date: 20251114
  Receipt Date: 20251114
  Transmission Date: 20260118
  Serious: No
  Sender: FDA-CTU
  Company Number: None

PATIENT

DRUGS (1)
  1. BRAFTOVI [Suspect]
     Active Substance: ENCORAFENIB

REACTIONS (13)
  - Intertrigo [None]
  - Stomatitis [None]
  - Throat tightness [None]
  - Aphonia [None]
  - Dysphagia [None]
  - Asthenia [None]
  - Dehydration [None]
  - Gait inability [None]
  - Therapy interrupted [None]
  - Taste disorder [None]
  - Decreased appetite [None]
  - Adverse drug reaction [None]
  - Condition aggravated [None]
